FAERS Safety Report 25578312 (Version 1)
Quarter: 2025Q3

REPORT INFORMATION
  Report Type: Spontaneous
  Country: JP (occurrence: JP)
  Receive Date: 20250718
  Receipt Date: 20250718
  Transmission Date: 20251020
  Serious: Yes (Other)
  Sender: MERCK SHARP & DOHME LLC
  Company Number: JP-009507513-2296905

PATIENT

DRUGS (3)
  1. KEYTRUDA [Suspect]
     Active Substance: PEMBROLIZUMAB
     Indication: Bile duct cancer
     Dosage: 200MGX1/3 WEEKS. 2 CYCLES
     Route: 041
  2. GEMCITABINE [Concomitant]
     Active Substance: GEMCITABINE
     Indication: Bile duct cancer
     Dosage: 1000MG/M2 ONCE WEEKLY
     Route: 041
  3. CISPLATIN [Concomitant]
     Active Substance: CISPLATIN
     Indication: Bile duct cancer
     Dosage: 25MG/M2 ONCE WEEKLY
     Route: 041

REACTIONS (5)
  - Anaphylactic shock [Recovered/Resolved]
  - Erythema [Recovered/Resolved]
  - Oropharyngeal discomfort [Recovered/Resolved]
  - Tongue oedema [Recovered/Resolved]
  - Tachycardia [Recovered/Resolved]
